FAERS Safety Report 20408624 (Version 5)
Quarter: 2022Q2

REPORT INFORMATION
  Report Type: Report from Study
  Country: US (occurrence: US)
  Receive Date: 20220201
  Receipt Date: 20220601
  Transmission Date: 20220720
  Serious: Yes (Other)
  Sender: FDA-Public Use
  Company Number: US-NOVARTISTESTPH-NVSC2022US020543

PATIENT
  Sex: Male

DRUGS (1)
  1. KESIMPTA [Suspect]
     Active Substance: OFATUMUMAB
     Indication: Product used for unknown indication
     Dosage: UNK
     Route: 065

REACTIONS (17)
  - Multiple sclerosis [Unknown]
  - Seasonal allergy [Unknown]
  - Daydreaming [Recovering/Resolving]
  - Arthropod bite [Unknown]
  - Hunger [Recovering/Resolving]
  - Weight decreased [Recovering/Resolving]
  - Diarrhoea [Recovering/Resolving]
  - Arthralgia [Unknown]
  - Immunoglobulins increased [Recovering/Resolving]
  - Myalgia [Unknown]
  - Pyrexia [Recovering/Resolving]
  - Influenza [Recovering/Resolving]
  - Fatigue [Unknown]
  - Chills [Recovering/Resolving]
  - Blood pressure increased [Recovering/Resolving]
  - Heart rate increased [Recovering/Resolving]
  - Therapeutic product effect decreased [Unknown]
